FAERS Safety Report 5586464-9 (Version None)
Quarter: 2008Q1

REPORT INFORMATION
  Report Type: 
  Country: None (occurrence: None)
  Receive Date: 20080110
  Receipt Date: 20071227
  Transmission Date: 20080703
  Serious: Yes (Hospitalization)
  Sender: FDA-Public Use
  Company Number: JP-AMGEN-US168850

PATIENT
  Sex: Female

DRUGS (13)
  1. ENBREL [Suspect]
     Indication: RHEUMATOID ARTHRITIS
     Route: 058
     Dates: start: 20050621
  2. BREDININ [Concomitant]
     Indication: RHEUMATOID ARTHRITIS
     Route: 048
     Dates: start: 20031127, end: 20051011
  3. PREDONINE [Concomitant]
     Indication: RHEUMATOID ARTHRITIS
     Dosage: UNKNOWN
     Route: 065
     Dates: start: 19970101
  4. FLUCAM [Concomitant]
     Indication: RHEUMATOID ARTHRITIS
     Route: 048
     Dates: start: 20020228
  5. SULFASALAZINE [Concomitant]
     Route: 065
  6. ALFAROL [Concomitant]
     Route: 048
  7. SELBEX [Concomitant]
     Indication: PROPHYLAXIS
     Route: 048
     Dates: start: 20020228
  8. BONALON [Concomitant]
     Route: 048
     Dates: start: 20040812
  9. CRAVIT [Concomitant]
     Route: 065
  10. MUCODYNE [Concomitant]
     Route: 065
  11. KETOPROFEN [Concomitant]
     Indication: RHEUMATOID ARTHRITIS
     Route: 065
  12. METALCAPTASE [Concomitant]
     Indication: RHEUMATOID ARTHRITIS
     Route: 048
     Dates: start: 20040812, end: 20060522
  13. PYDOXAL [Concomitant]
     Route: 048
     Dates: start: 20040812, end: 20060522

REACTIONS (1)
  - RETINAL DETACHMENT [None]
